FAERS Safety Report 20438362 (Version 2)
Quarter: 2022Q1

REPORT INFORMATION
  Report Type: Spontaneous
  Country: JP (occurrence: JP)
  Receive Date: 20220207
  Receipt Date: 20220221
  Transmission Date: 20220423
  Serious: Yes (Death)
  Sender: FDA-Public Use
  Company Number: JP-PFIZER INC-202200145368

PATIENT
  Age: 72 Year
  Sex: Male
  Weight: 86.6 kg

DRUGS (2)
  1. LORBRENA [Suspect]
     Active Substance: LORLATINIB
     Indication: Non-small cell lung cancer
     Dosage: 100 MG ONCE DAILY
     Dates: start: 20200130, end: 20200306
  2. LORBRENA [Suspect]
     Active Substance: LORLATINIB
     Dosage: 50 MG ONCE DAILY
     Dates: start: 20200325, end: 20210108

REACTIONS (1)
  - Neoplasm progression [Fatal]
